FAERS Safety Report 5450282-2 (Version None)
Quarter: 2007Q3

REPORT INFORMATION
  Report Type: 
  Country: None (occurrence: None)
  Receive Date: 20070912
  Receipt Date: 20070904
  Transmission Date: 20080115
  Serious: Yes (Other)
  Sender: FDA-Public Use
  Company Number: US-JNJFOC-20070900957

PATIENT
  Sex: Male
  Weight: 52.62 kg

DRUGS (2)
  1. RISPERDAL [Suspect]
     Indication: AGGRESSION
     Route: 048
  2. RISPERDAL [Suspect]
     Indication: BIPOLAR DISORDER
     Route: 048

REACTIONS (2)
  - HOSPITALISATION [None]
  - MECHANICAL VENTILATION [None]
